FAERS Safety Report 5086145-4 (Version None)
Quarter: 2006Q3

REPORT INFORMATION
  Report Type: 
  Country: None (occurrence: None)
  Receive Date: 20060818
  Receipt Date: 20060807
  Transmission Date: 20061208
  Serious: Yes (Disabling, Other)
  Sender: FDA-Public Use
  Company Number: 2006090776

PATIENT
  Age: 62 Year
  Sex: Male
  Weight: 96.1626 kg

DRUGS (1)
  1. LIPITOR [Suspect]
     Indication: BLOOD CHOLESTEROL
     Dosage: 10 MG (10 MG, 1 IN 1 D), ORAL
     Route: 048
     Dates: start: 20050322, end: 20050515

REACTIONS (5)
  - BLOOD TEST ABNORMAL [None]
  - IMPAIRED WORK ABILITY [None]
  - JOINT INJURY [None]
  - TEMPORAL ARTERITIS [None]
  - WALKING AID USER [None]
